FAERS Safety Report 12523115 (Version 2)
Quarter: 2016Q3

REPORT INFORMATION
  Report Type: Spontaneous
  Country: US (occurrence: US)
  Receive Date: 20160701
  Receipt Date: 20160911
  Transmission Date: 20161109
  Serious: Yes (Other)
  Sender: FDA-Public Use
  Company Number: US-TEVA-672982USA

PATIENT
  Age: 49 Year
  Sex: Male

DRUGS (1)
  1. ZECUITY [Suspect]
     Active Substance: SUMATRIPTAN SUCCINATE
     Route: 062
     Dates: start: 201604, end: 201604

REACTIONS (9)
  - Product physical issue [Unknown]
  - Throat tightness [Unknown]
  - Application site scar [Unknown]
  - Electric shock [Unknown]
  - Application site exfoliation [Unknown]
  - Application site erythema [Unknown]
  - Intentional product use issue [Unknown]
  - Application site discolouration [Unknown]
  - Dyspnoea [Unknown]

NARRATIVE: CASE EVENT DATE: 201604
